FAERS Safety Report 7465620-9 (Version None)
Quarter: 2011Q2

REPORT INFORMATION
  Report Type: 
  Country: None (occurrence: None)
  Receive Date: 20110509
  Receipt Date: 20110427
  Transmission Date: 20111010
  Serious: Yes (Death, Hospitalization)
  Sender: FDA-Public Use
  Company Number: RU-CELGENEUS-251-C5013-11032033

PATIENT
  Sex: Male
  Weight: 53.1 kg

DRUGS (7)
  1. LENALIDOMIDE [Suspect]
     Indication: PROSTATE CANCER
     Dosage: 25 MILLIGRAM
     Route: 048
     Dates: start: 20101124
  2. PREDNISONE [Suspect]
     Indication: PROSTATE CANCER
     Dosage: 10 MILLIGRAM
     Route: 065
     Dates: start: 20101124
  3. DOCETAXEL [Suspect]
     Dosage: 118 MILLIGRAM
     Route: 065
     Dates: start: 20110215, end: 20110309
  4. ONDANSETRON [Concomitant]
     Dosage: 16 MILLIGRAM
     Route: 030
     Dates: start: 20110215, end: 20110215
  5. LENALIDOMIDE [Suspect]
     Dosage: 25 MILLIGRAM
     Route: 048
     Dates: start: 20110215, end: 20110309
  6. PREDNISONE [Suspect]
     Dosage: 10 MILLIGRAM
     Route: 065
     Dates: start: 20110215, end: 20110309
  7. DOCETAXEL [Suspect]
     Indication: PROSTATE CANCER
     Dosage: 120 MILLIGRAM
     Route: 065
     Dates: start: 20101124

REACTIONS (2)
  - ANAEMIA [None]
  - DISEASE PROGRESSION [None]
